FAERS Safety Report 15197381 (Version 1)
Quarter: 2018Q3

REPORT INFORMATION
  Report Type: Spontaneous
  Country: NL (occurrence: NL)
  Receive Date: 20180725
  Receipt Date: 20180725
  Transmission Date: 20181010
  Serious: Yes (Hospitalization)
  Sender: FDA-Public Use
  Company Number: PHHY2018NL053563

PATIENT
  Age: 48 Year
  Sex: Male

DRUGS (1)
  1. DICLOFENAC SODIUM. [Suspect]
     Active Substance: DICLOFENAC SODIUM
     Indication: PRODUCT USED FOR UNKNOWN INDICATION
     Dosage: 50 MG, ONCE/SINGLE
     Route: 048

REACTIONS (15)
  - Hypotension [Recovered/Resolved]
  - Nausea [Recovered/Resolved]
  - Electrocardiogram ST segment elevation [Recovered/Resolved]
  - Acute myocardial infarction [Recovered/Resolved]
  - Syncope [Recovered/Resolved]
  - Dizziness [Recovered/Resolved]
  - Anal incontinence [Recovered/Resolved]
  - Urinary incontinence [Recovered/Resolved]
  - Kounis syndrome [Recovered/Resolved]
  - Troponin T increased [Recovered/Resolved]
  - Anaphylactic reaction [Recovered/Resolved]
  - Loss of consciousness [Recovered/Resolved]
  - Urticaria [Recovered/Resolved]
  - Type I hypersensitivity [Recovered/Resolved]
  - Oral pruritus [Recovered/Resolved]
